FAERS Safety Report 21297469 (Version 1)
Quarter: 2022Q3

REPORT INFORMATION
  Report Type: Report from Study
  Country: CO (occurrence: CO)
  Receive Date: 20220906
  Receipt Date: 20220906
  Transmission Date: 20221027
  Serious: Yes (Hospitalization, Other)
  Sender: FDA-Public Use
  Company Number: CO-ASTELLAS-2022US031263

PATIENT
  Age: 66 Year
  Sex: Male

DRUGS (1)
  1. TACROLIMUS [Suspect]
     Active Substance: TACROLIMUS
     Indication: Liver transplant
     Route: 048
     Dates: start: 20150511

REACTIONS (4)
  - Diabetic coma [Recovered/Resolved]
  - Encephalopathy [Not Recovered/Not Resolved]
  - COVID-19 [Recovered/Resolved]
  - Muscle tone disorder [Unknown]
